FAERS Safety Report 8791083 (Version 1)
Quarter: 2012Q4

REPORT INFORMATION
  Report Type: Spontaneous
  Country: US (occurrence: None)
  Receive Date: 20120913
  Receipt Date: 20120913
  Transmission Date: 20130627
  Serious: No
  Sender: FDA-Public Use
  Company Number: None

PATIENT
  Sex: Female
  Weight: 128.4 kg

DRUGS (1)
  1. VENLAFAXINE [Suspect]
     Dosage: 3 caps QDay po
     Route: 048
     Dates: start: 20120512, end: 20120813

REACTIONS (2)
  - Drug ineffective [None]
  - Product substitution issue [None]
